FAERS Safety Report 20690207 (Version 1)
Quarter: 2022Q2

REPORT INFORMATION
  Report Type: Report from Study
  Country: BR (occurrence: BR)
  Receive Date: 20220408
  Receipt Date: 20220408
  Transmission Date: 20220720
  Serious: Yes (Other)
  Sender: FDA-Public Use
  Company Number: BR-NOVARTISPH-NVSC2022BR077737

PATIENT
  Sex: Male

DRUGS (1)
  1. TIMOLOL MALEATE\TRAVOPROST [Suspect]
     Active Substance: TIMOLOL MALEATE\TRAVOPROST
     Indication: Product used for unknown indication
     Dosage: UNK (CONTINUOUS USE)
     Route: 065

REACTIONS (4)
  - Cerebrovascular accident [Unknown]
  - Gait disturbance [Unknown]
  - Speech disorder [Unknown]
  - Product dose omission issue [Unknown]
